FAERS Safety Report 20960182 (Version 1)
Quarter: 2022Q2

REPORT INFORMATION
  Report Type: Spontaneous
  Country: CN (occurrence: CN)
  Receive Date: 20220615
  Receipt Date: 20220615
  Transmission Date: 20220720
  Serious: Yes (Other)
  Sender: FDA-Public Use
  Company Number: CN-SUN PHARMACEUTICAL INDUSTRIES LTD-2022R1-340177

PATIENT
  Age: 48 Year
  Sex: Male

DRUGS (2)
  1. CARBOPLATIN [Suspect]
     Active Substance: CARBOPLATIN
     Indication: Chemotherapy
     Dosage: 400 MILLIGRAM, 1 DOSE/3 WEEKS
     Route: 042
     Dates: start: 20201215
  2. PACLITAXEL [Suspect]
     Active Substance: PACLITAXEL
     Indication: Chemotherapy
     Dosage: 180 MILLIGRAM, 1 DOSE/3 WEEKS
     Route: 042
     Dates: start: 20201215

REACTIONS (3)
  - Therapy partial responder [Unknown]
  - Diarrhoea [Unknown]
  - Nausea [Unknown]
